FAERS Safety Report 9992418 (Version 3)
Quarter: 2016Q1

REPORT INFORMATION
  Report Type: Report from Study
  Country: CA (occurrence: CA)
  Receive Date: 20140310
  Receipt Date: 20160331
  Transmission Date: 20160526
  Serious: Yes (Other)
  Sender: FDA-Public Use
  Company Number: CA-ABBVIE-14P-028-1208602-00

PATIENT
  Age: 75 Year
  Sex: Female
  Weight: 56.75 kg

DRUGS (2)
  1. HUMIRA [Suspect]
     Active Substance: ADALIMUMAB
     Indication: RHEUMATOID ARTHRITIS
     Route: 058
     Dates: start: 20101220, end: 20140213
  2. HUMIRA [Suspect]
     Active Substance: ADALIMUMAB
     Dosage: LAST INJECTION: 17 JUL 2014
     Route: 058
     Dates: start: 2014

REACTIONS (6)
  - Cataract [Recovering/Resolving]
  - Eye pain [Not Recovered/Not Resolved]
  - Glaucoma [Unknown]
  - Optic nerve neoplasm [Unknown]
  - Tinnitus [Recovering/Resolving]
  - Concussion [Recovering/Resolving]

NARRATIVE: CASE EVENT DATE: 20131129
